FAERS Safety Report 18573183 (Version 1)
Quarter: 2020Q4

REPORT INFORMATION
  Report Type: Spontaneous
  Country: CA (occurrence: CA)
  Receive Date: 20201203
  Receipt Date: 20201203
  Transmission Date: 20210114
  Serious: Yes (Other)
  Sender: FDA-Public Use
  Company Number: CA-JNJFOC-20201205585

PATIENT

DRUGS (4)
  1. INDOMETHACIN [INDOMETACIN] [Suspect]
     Active Substance: INDOMETHACIN
     Indication: CONGENITAL TRICUSPID VALVE STENOSIS
     Dosage: 100 MG 2 TO 4 TIMES DAILY
     Route: 064
  2. IBUPROFEN. [Suspect]
     Active Substance: IBUPROFEN
     Indication: CONGENITAL TRICUSPID VALVE STENOSIS
     Dosage: 200 TO 600 MG 3 TO 4 TIMES DAILY
     Route: 064
  3. INDOMETHACIN [INDOMETACIN] [Suspect]
     Active Substance: INDOMETHACIN
     Indication: CONGENITAL HEART VALVE DISORDER
     Dosage: 50-100 MG 3 TIMES DAILY
     Route: 064
  4. IBUPROFEN. [Suspect]
     Active Substance: IBUPROFEN
     Indication: CONGENITAL HEART VALVE DISORDER

REACTIONS (2)
  - Premature baby [Unknown]
  - Foetal exposure during pregnancy [Unknown]
